FAERS Safety Report 15909429 (Version 1)
Quarter: 2019Q1

REPORT INFORMATION
  Report Type: Spontaneous
  Country: US (occurrence: US)
  Receive Date: 20190204
  Receipt Date: 20190204
  Transmission Date: 20190417
  Serious: No
  Sender: FDA-Public Use
  Company Number: US-ABBVIE-18K-163-2254483-00

PATIENT
  Age: 55 Year
  Sex: Female

DRUGS (3)
  1. TURMERIC [Concomitant]
     Active Substance: HERBALS\TURMERIC
     Indication: RHEUMATOID ARTHRITIS
     Route: 048
     Dates: start: 2017
  2. METHOTREXATE. [Suspect]
     Active Substance: METHOTREXATE
     Indication: RHEUMATOID ARTHRITIS
     Dosage: 8-10 ONCE A WEEK?30-32MG EVERY WEEK
     Route: 065
     Dates: start: 2016, end: 201702
  3. HUMIRA [Suspect]
     Active Substance: ADALIMUMAB
     Indication: RHEUMATOID ARTHRITIS
     Route: 058
     Dates: start: 201702, end: 201709

REACTIONS (14)
  - Hypophagia [Unknown]
  - Seborrhoeic dermatitis [Unknown]
  - Ear pruritus [Unknown]
  - Drug ineffective [Unknown]
  - Eye swelling [Unknown]
  - Red blood cell sedimentation rate decreased [Unknown]
  - Drug hypersensitivity [Unknown]
  - Arthropathy [Not Recovered/Not Resolved]
  - Drug ineffective [Unknown]
  - Glycosylated haemoglobin decreased [Unknown]
  - Fibromyalgia [Unknown]
  - Arthralgia [Unknown]
  - C-reactive protein decreased [Unknown]
  - Swelling [Unknown]

NARRATIVE: CASE EVENT DATE: 2017
